FAERS Safety Report 12171710 (Version 1)
Quarter: 2016Q1

REPORT INFORMATION
  Report Type: Spontaneous
  Country: IT (occurrence: IT)
  Receive Date: 20160311
  Receipt Date: 20160311
  Transmission Date: 20160526
  Serious: Yes (Other)
  Sender: FDA-Public Use
  Company Number: IT-PFIZER INC-2016144940

PATIENT
  Age: 53 Year
  Sex: Female

DRUGS (4)
  1. MEDROL [Suspect]
     Active Substance: METHYLPREDNISOLONE
     Indication: ASTHMA
     Dosage: 16 MG, DAILY
     Dates: start: 20050101, end: 20150701
  2. XOLAIR [Suspect]
     Active Substance: OMALIZUMAB
     Indication: ASTHMA
     Dosage: 2 DF, MONTHLY
     Route: 042
     Dates: start: 20150301, end: 20151101
  3. PAFINUR [Concomitant]
     Dosage: 10 MG, UNK
     Route: 048
  4. FLUTICASONE FUROATE W/VILANTEROL [Concomitant]
     Active Substance: FLUTICASONE FUROATE\VILANTEROL TRIFENATATE
     Dosage: 2 UNK, UNK
     Route: 002

REACTIONS (4)
  - Peripheral swelling [Unknown]
  - Joint stiffness [Unknown]
  - Paraesthesia [Unknown]
  - Allergic granulomatous angiitis [Unknown]

NARRATIVE: CASE EVENT DATE: 20150801
